FAERS Safety Report 7641827-2 (Version None)
Quarter: 2011Q3

REPORT INFORMATION
  Report Type: 
  Country: None (occurrence: None)
  Receive Date: 20110728
  Receipt Date: 20110721
  Transmission Date: 20111222
  Serious: Yes (Other)
  Sender: FDA-Public Use
  Company Number: US-JNJFOC-20100705878

PATIENT

DRUGS (3)
  1. LEVAQUIN [Suspect]
     Indication: SINUSITIS
     Route: 048
  2. LEVAQUIN [Suspect]
     Indication: EAR INFECTION
     Route: 048
  3. PREDNISONE [Suspect]
     Indication: ASTHMA
     Route: 065

REACTIONS (4)
  - PERIARTHRITIS [None]
  - TENDON INJURY [None]
  - TENDONITIS [None]
  - TRIGGER FINGER [None]
